APPROVED DRUG PRODUCT: CHOLESTYRAMINE
Active Ingredient: CHOLESTYRAMINE
Strength: EQ 4GM RESIN/PACKET
Dosage Form/Route: POWDER;ORAL
Application: A074554 | Product #001
Applicant: ANI PHARMACEUTICALS INC
Approved: Oct 2, 1996 | RLD: No | RS: No | Type: DISCN